FAERS Safety Report 9518939 (Version 1)
Quarter: 2013Q3

REPORT INFORMATION
  Report Type: Spontaneous
  Country: US (occurrence: US)
  Receive Date: 20130912
  Receipt Date: 20130912
  Transmission Date: 20140515
  Serious: No
  Sender: FDA-Public Use
  Company Number: US-PFIZER INC-2013262823

PATIENT
  Age: 80 Year
  Sex: Male

DRUGS (7)
  1. XANAX [Suspect]
     Dosage: UNK
  2. PENICILLIN [Suspect]
     Dosage: UNK
  3. INDOMETHACIN [Suspect]
     Dosage: UNK
  4. GLUCOPHAGE [Suspect]
     Dosage: UNK
  5. BYETTA [Suspect]
     Dosage: UNK
  6. CRESTOR [Suspect]
     Dosage: UNK
  7. NIASPAN [Suspect]
     Dosage: UNK

REACTIONS (1)
  - Drug hypersensitivity [Unknown]
